FAERS Safety Report 5967652-6 (Version None)
Quarter: 2008Q4

REPORT INFORMATION
  Report Type: 
  Country: None (occurrence: None)
  Receive Date: 20081126
  Receipt Date: 20081118
  Transmission Date: 20090506
  Serious: Yes (Death, Hospitalization)
  Sender: FDA-Public Use
  Company Number: PHEH2008US08099

PATIENT
  Sex: Male
  Weight: 75.6 kg

DRUGS (5)
  1. EXJADE [Suspect]
     Indication: IRON OVERLOAD
     Dosage: 1500 MG DAILY
     Route: 048
     Dates: start: 20080701, end: 20080902
  2. EXJADE [Suspect]
     Dosage: 1500 MG DAILY
     Route: 048
     Dates: start: 20080904, end: 20080909
  3. ACYCLOVIR [Concomitant]
     Dosage: 400 MG, BID
     Dates: start: 20080902, end: 20080909
  4. AMINOCAPROIC ACID [Concomitant]
     Dosage: 500 MG, TID
     Route: 048
     Dates: start: 20080902, end: 20080909
  5. PROCARDIA XL [Concomitant]
     Dosage: 60 MG, QD
     Route: 048
     Dates: start: 20080903, end: 20080907

REACTIONS (22)
  - ACTIVATED PARTIAL THROMBOPLASTIN TIME PROLONGED [None]
  - ACUTE RESPIRATORY DISTRESS SYNDROME [None]
  - ANXIETY [None]
  - BACTERIAL INFECTION [None]
  - BLAST CRISIS IN MYELOGENOUS LEUKAEMIA [None]
  - BLOOD BILIRUBIN INCREASED [None]
  - BLOOD CALCIUM DECREASED [None]
  - BLOOD CREATININE INCREASED [None]
  - BLOOD POTASSIUM DECREASED [None]
  - BLOOD UREA INCREASED [None]
  - ENDOTRACHEAL INTUBATION [None]
  - GLOMERULAR FILTRATION RATE DECREASED [None]
  - HYPOTENSION [None]
  - MULTI-ORGAN FAILURE [None]
  - NAUSEA [None]
  - PAIN [None]
  - PNEUMONIA [None]
  - PROTHROMBIN TIME PROLONGED [None]
  - PYREXIA [None]
  - RENAL FAILURE ACUTE [None]
  - SEPTIC SHOCK [None]
  - WHITE BLOOD CELL COUNT INCREASED [None]
